FAERS Safety Report 25779056 (Version 1)
Quarter: 2025Q3

REPORT INFORMATION
  Report Type: Spontaneous
  Country: EU (occurrence: EU)
  Receive Date: 20250909
  Receipt Date: 20250909
  Transmission Date: 20251021
  Serious: Yes (Hospitalization)
  Sender: PFIZER
  Company Number: None

PATIENT
  Age: 54 Year
  Sex: Male
  Weight: 80 kg

DRUGS (8)
  1. DAPTOMYCIN [Suspect]
     Active Substance: DAPTOMYCIN
     Indication: Mediastinitis
     Route: 042
     Dates: start: 20250508, end: 20250519
  2. MEROPENEM [Suspect]
     Active Substance: MEROPENEM
     Indication: Mediastinitis
     Route: 042
     Dates: start: 20250508, end: 20250519
  3. BACTRIM [Suspect]
     Active Substance: SULFAMETHOXAZOLE\TRIMETHOPRIM
     Indication: Antibiotic therapy
     Dosage: 6 DF, 1X/DAY
     Route: 042
     Dates: start: 20250506, end: 20250513
  4. PIPERACILLIN + TAZOBACTAM/VIATRIS [Concomitant]
  5. AMOXICILLIN [Concomitant]
     Active Substance: AMOXICILLIN
  6. LINEZOLID [Concomitant]
     Active Substance: LINEZOLID
  7. CLAVULANIC ACID [Concomitant]
     Active Substance: CLAVULANIC ACID
  8. LEVOFLOXACIN [Concomitant]
     Active Substance: LEVOFLOXACIN

REACTIONS (4)
  - Eosinophilia [Recovering/Resolving]
  - Rash morbilliform [Recovering/Resolving]
  - Liver function test abnormal [Recovering/Resolving]
  - Off label use [Unknown]

NARRATIVE: CASE EVENT DATE: 20250518
